FAERS Safety Report 8596762 (Version 3)
Quarter: 2012Q4

REPORT INFORMATION
  Report Type: 
  Country: US (occurrence: US)
  Receive Date: 20120605
  Receipt Date: 20121007
  Transmission Date: 20130627
  Serious: Yes (Hospitalization)
  Sender: FDA-Public Use
  Company Number: US-ELI_LILLY_AND_COMPANY-US201205009735

PATIENT
  Sex: Female
  Weight: 53.52 kg

DRUGS (6)
  1. FORTEO [Suspect]
     Indication: OSTEOPOROSIS
     Dosage: UNK UNK, qd
     Route: 058
     Dates: start: 201201
  2. METHADONE [Concomitant]
  3. DILAUDID [Concomitant]
  4. VESICARE [Concomitant]
  5. ALLEGRA [Concomitant]
  6. NEXIUM [Concomitant]

REACTIONS (1)
  - Multiple sclerosis relapse [Unknown]
